FAERS Safety Report 13575938 (Version 2)
Quarter: 2017Q3

REPORT INFORMATION
  Report Type: Spontaneous
  Country: US (occurrence: US)
  Receive Date: 20170524
  Receipt Date: 20170705
  Transmission Date: 20171127
  Serious: No
  Sender: FDA-Public Use
  Company Number: US-PFIZER INC-2017219835

PATIENT
  Age: 80 Year
  Sex: Female
  Weight: 84 kg

DRUGS (2)
  1. TRAMADOL. [Concomitant]
     Active Substance: TRAMADOL
  2. HYDROMORPHONE HYDROCHLORIDE. [Suspect]
     Active Substance: HYDROMORPHONE HYDROCHLORIDE
     Indication: PAIN
     Dosage: TABLET
     Dates: start: 201704

REACTIONS (3)
  - Neuropathy peripheral [Unknown]
  - Withdrawal syndrome [Unknown]
  - Constipation [Unknown]

NARRATIVE: CASE EVENT DATE: 201704
